FAERS Safety Report 14597241 (Version 1)
Quarter: 2018Q1

REPORT INFORMATION
  Report Type: Report from Study
  Country: None (occurrence: FR)
  Receive Date: 20180305
  Receipt Date: 20180305
  Transmission Date: 20180509
  Serious: Yes (Other)
  Sender: FDA-Public Use
  Company Number: FR-ABBVIE-18K-056-2271303-00

PATIENT
  Sex: Male

DRUGS (3)
  1. DUODOPA [Suspect]
     Active Substance: CARBIDOPA\LEVODOPA
     Indication: PARKINSON^S DISEASE
     Dosage: MOR::9 ML (3 TID) CONTINUOUS IN DAY: 2.7 ML/H DAY RHYTHM:6:30 AM TO 10 PM
     Route: 050
     Dates: start: 201801, end: 2018
  2. DUODOPA [Suspect]
     Active Substance: CARBIDOPA\LEVODOPA
     Dosage: MOR::9 ML (3 TID) CONTINUOUS IN DAY: 2.7 ML/H DAY RHYTHM:6:30 AM TO 10 PM
     Route: 050
     Dates: start: 201802
  3. DUODOPA [Suspect]
     Active Substance: CARBIDOPA\LEVODOPA
     Dosage: MOR::9 ML (3 TID) CONTINUOUS IN DAY: 2.6 ML/H DAY RHYTHM:6:30 AM TO 10 PM
     Route: 050
     Dates: start: 20180219, end: 201802

REACTIONS (7)
  - Somnolence [Unknown]
  - Abdominal distension [Unknown]
  - Dyskinesia [Unknown]
  - Dysarthria [Unknown]
  - Freezing phenomenon [Unknown]
  - General physical health deterioration [Unknown]
  - Abnormal dreams [Unknown]

NARRATIVE: CASE EVENT DATE: 201802
